FAERS Safety Report 6856818-9 (Version None)
Quarter: 2010Q3

REPORT INFORMATION
  Report Type: 
  Country: None (occurrence: None)
  Receive Date: 20100719
  Receipt Date: 20100713
  Transmission Date: 20110219
  Serious: Yes (Death, Hospitalization, Other)
  Sender: FDA-Public Use
  Company Number: NL-ELI_LILLY_AND_COMPANY-NL201007003079

PATIENT
  Age: 76 Year
  Sex: Male

DRUGS (2)
  1. EFFIENT [Suspect]
     Dosage: UNK, UNKNOWN
     Route: 065
  2. REOPRO [Concomitant]
     Dosage: UNK, UNKNOWN
     Route: 065

REACTIONS (2)
  - CEREBROVASCULAR ACCIDENT [None]
  - CORONARY ANGIOPLASTY [None]
